FAERS Safety Report 4715322-4 (Version None)
Quarter: 2005Q3

REPORT INFORMATION
  Report Type: 
  Country: None (occurrence: None)
  Receive Date: 20050715
  Receipt Date: 20050707
  Transmission Date: 20060218
  Serious: Yes (Other)
  Sender: FDA-Public Use
  Company Number: BE-ABBOTT-05P-013-0305080-00

PATIENT
  Age: 69 Year
  Sex: Male

DRUGS (4)
  1. REMIFENTANIL [Suspect]
     Indication: SEDATION
     Route: 042
  2. REMIFENTANIL [Suspect]
     Route: 042
  3. REMIFENTANIL [Suspect]
     Route: 042
  4. PROPOFOL [Concomitant]
     Indication: SEDATION
     Dosage: 200 MG/HOUR
     Route: 042

REACTIONS (1)
  - DRUG WITHDRAWAL SYNDROME [None]
